FAERS Safety Report 15662354 (Version 2)
Quarter: 2018Q4

REPORT INFORMATION
  Report Type: Report from Study
  Country: JP (occurrence: JP)
  Receive Date: 20181127
  Receipt Date: 20181211
  Transmission Date: 20190205
  Serious: Yes (Other)
  Sender: FDA-Public Use
  Company Number: JP-GE HEALTHCARE LIFE SCIENCES-2018CSU002393

PATIENT

DRUGS (7)
  1. VIZAMYL [Suspect]
     Active Substance: FLUTEMETAMOL F-18
     Indication: DEMENTIA ALZHEIMER^S TYPE
     Dosage: UNK UNK, SINGLE
     Route: 065
     Dates: start: 20170111, end: 20170111
  2. YAKUBAN [Concomitant]
     Active Substance: FLURBIPROFEN
     Indication: INTERVERTEBRAL DISC DISORDER
     Dosage: UNK, QD
     Route: 061
     Dates: start: 20180516
  3. NEXIUM [Concomitant]
     Active Substance: ESOMEPRAZOLE MAGNESIUM
     Indication: GASTRIC CANCER
     Dosage: 20 MG, QD
     Route: 048
     Dates: start: 20180529, end: 20180613
  4. HIRUDOID [Concomitant]
     Active Substance: GLYCOSAMINOGLYCANS
     Indication: ECZEMA
     Dosage: UNK, QD
     Route: 061
     Dates: start: 20180221
  5. RIVASTACH [Concomitant]
     Active Substance: RIVASTIGMINE
     Indication: DEMENTIA ALZHEIMER^S TYPE
     Dosage: 18 MG, QD
     Route: 062
     Dates: start: 20160510
  6. ADUCANUMAB [Suspect]
     Active Substance: ADUCANUMAB
     Indication: DEMENTIA ALZHEIMER^S TYPE
     Dosage: UNK
     Route: 065
     Dates: start: 20170125, end: 20180516
  7. LOXOPROFEN NA [Concomitant]
     Active Substance: LOXOPROFEN SODIUM
     Indication: OSTEOARTHRITIS
     Dosage: UNK UNK, QD
     Route: 061
     Dates: start: 20170712

REACTIONS (2)
  - Oesophageal carcinoma [Not Recovered/Not Resolved]
  - Gastric cancer [Unknown]

NARRATIVE: CASE EVENT DATE: 20180613
